FAERS Safety Report 25981477 (Version 1)
Quarter: 2025Q4

REPORT INFORMATION
  Report Type: Spontaneous
  Country: JP (occurrence: JP)
  Receive Date: 20251030
  Receipt Date: 20251030
  Transmission Date: 20260117
  Serious: Yes (Other)
  Sender: JOHNSON AND JOHNSON
  Company Number: JP-MTPC-MTPC2025-0019144

PATIENT
  Age: 65 Year
  Sex: Male

DRUGS (2)
  1. REMICADE [Suspect]
     Active Substance: INFLIXIMAB
     Indication: Colitis ulcerative
     Route: 065
  2. GANCICLOVIR SODIUM [Suspect]
     Active Substance: GANCICLOVIR SODIUM
     Indication: Infectious iridocyclitis

REACTIONS (6)
  - Infectious iridocyclitis [Recovered/Resolved with Sequelae]
  - Ocular lymphoma [Recovered/Resolved with Sequelae]
  - Open angle glaucoma [Unknown]
  - Viral corneal ulcer [Unknown]
  - Iritis [Unknown]
  - Off label use [Unknown]
